FAERS Safety Report 7640457-6 (Version None)
Quarter: 2011Q3

REPORT INFORMATION
  Report Type: 
  Country: None (occurrence: None)
  Receive Date: 20110728
  Receipt Date: 20110718
  Transmission Date: 20111222
  Serious: No
  Sender: FDA-Public Use
  Company Number: US-BIOGENIDEC-2010BI038733

PATIENT
  Age: 51 Year
  Sex: Female

DRUGS (1)
  1. TYSABRI [Suspect]
     Indication: MULTIPLE SCLEROSIS
     Route: 042
     Dates: start: 20100805, end: 20101202

REACTIONS (8)
  - FEELING COLD [None]
  - PARAESTHESIA [None]
  - MIGRAINE [None]
  - VISUAL IMPAIRMENT [None]
  - HYPERVIGILANCE [None]
  - INSOMNIA [None]
  - HYPOAESTHESIA [None]
  - HUNGER [None]
